FAERS Safety Report 5620181-1 (Version None)
Quarter: 2008Q1

REPORT INFORMATION
  Report Type: 
  Country: None (occurrence: None)
  Receive Date: 20080208
  Receipt Date: 20080128
  Transmission Date: 20080703
  Serious: Yes (Hospitalization)
  Sender: FDA-Public Use
  Company Number: US-ELI_LILLY_AND_COMPANY-US200801006138

PATIENT
  Sex: Female

DRUGS (2)
  1. EVISTA [Suspect]
     Indication: MENOPAUSAL SYMPTOMS
     Dosage: 60 MG, DAILY (1/D)
     Dates: end: 20040501
  2. EVISTA [Suspect]
     Dosage: 60 MG, DAILY (1/D)
     Dates: start: 20041001

REACTIONS (7)
  - ABDOMINAL STRANGULATED HERNIA [None]
  - ELECTROLYTE IMBALANCE [None]
  - FISTULA [None]
  - GASTROINTESTINAL ANASTOMOTIC LEAK [None]
  - INCISIONAL HERNIA [None]
  - INFECTION [None]
  - SHORT-BOWEL SYNDROME [None]
